FAERS Safety Report 8612750 (Version 3)
Quarter: 2013Q4

REPORT INFORMATION
  Report Type: Spontaneous
  Country: US (occurrence: US)
  Receive Date: 20120613
  Receipt Date: 20131101
  Transmission Date: 20140711
  Serious: Yes (Life-Threatening)
  Sender: FDA-Public Use
  Company Number: US-009507513-1207USA009833

PATIENT
  Sex: Male

DRUGS (7)
  1. ZOCOR [Suspect]
     Dosage: 40 MG, QD
     Route: 048
  2. METFORMIN [Suspect]
     Dosage: 2000 MG, QD
     Route: 048
  3. PERINDOPRIL ERBUMINE [Concomitant]
     Dosage: 2 MG, QD
  4. ACETYLSALICYLZUUR CARDIO CF [Concomitant]
     Dosage: 80 MG, QD
  5. ACETAMINOPHEN [Concomitant]
  6. PERSANTIN RETARD [Concomitant]
  7. PENFILL 50R [Concomitant]
     Dosage: 16 IU, QD

REACTIONS (2)
  - Jaundice [Unknown]
  - Nausea [Unknown]
